FAERS Safety Report 5647690-3 (Version None)
Quarter: 2008Q1

REPORT INFORMATION
  Report Type: 
  Country: None (occurrence: None)
  Receive Date: 20080303
  Receipt Date: 20080222
  Transmission Date: 20080703
  Serious: Yes (Hospitalization, Other)
  Sender: FDA-Public Use
  Company Number: SE-ABBOTT-08P-150-0439536-00

PATIENT
  Sex: Male

DRUGS (2)
  1. HUMIRA [Suspect]
     Indication: ANKYLOSING SPONDYLITIS
     Route: 058
     Dates: start: 20070701
  2. HUMIRA [Suspect]
     Route: 058

REACTIONS (7)
  - ERYTHEMA [None]
  - IMMUNE SYSTEM DISORDER [None]
  - INFECTION [None]
  - INFECTION IN AN IMMUNOCOMPROMISED HOST [None]
  - LOCAL SWELLING [None]
  - PACEMAKER COMPLICATION [None]
  - PURULENT DISCHARGE [None]
